FAERS Safety Report 15464503 (Version 1)
Quarter: 2018Q4

REPORT INFORMATION
  Report Type: Spontaneous
  Country: JP (occurrence: JP)
  Receive Date: 20181004
  Receipt Date: 20181004
  Transmission Date: 20190204
  Serious: Yes (Other)
  Sender: FDA-Public Use
  Company Number: JP-PFIZER INC-2018391359

PATIENT
  Age: 87 Year
  Sex: Male

DRUGS (1)
  1. LYRICA [Suspect]
     Active Substance: PREGABALIN
     Dosage: 300 MG, DAILY
     Route: 048

REACTIONS (5)
  - Pain [Recovered/Resolved]
  - Hypersensitivity [Unknown]
  - Oedema peripheral [Recovered/Resolved]
  - Femoral neck fracture [Unknown]
  - Fall [Unknown]
